FAERS Safety Report 12917006 (Version 2)
Quarter: 2017Q4

REPORT INFORMATION
  Report Type: Spontaneous
  Country: US (occurrence: US)
  Receive Date: 20161107
  Receipt Date: 20171212
  Transmission Date: 20180320
  Serious: No
  Sender: FDA-Public Use
  Company Number: US-JAZZ-2016-US-017360

PATIENT
  Sex: Male

DRUGS (38)
  1. MELOXICAM. [Concomitant]
     Active Substance: MELOXICAM
  2. ALLOPURINOL. [Concomitant]
     Active Substance: ALLOPURINOL
  3. BETAMETHASONE                      /00008502/ [Concomitant]
     Active Substance: BETAMETHASONE SODIUM PHOSPHATE
  4. BOTOX [Concomitant]
     Active Substance: ONABOTULINUMTOXINA
  5. CLINDAMYCIN HCL [Concomitant]
     Active Substance: CLINDAMYCIN HYDROCHLORIDE
  6. CORTISPORIN                        /00271401/ [Concomitant]
  7. POLYTRIM [Concomitant]
     Active Substance: POLYMYXIN B SULFATE\TRIMETHOPRIM SULFATE
  8. TOVIAZ [Concomitant]
     Active Substance: FESOTERODINE FUMARATE
  9. XYREM [Suspect]
     Active Substance: SODIUM OXYBATE
     Indication: INSOMNIA
     Dosage: 2.5 G, BID
     Route: 048
     Dates: start: 201008, end: 201008
  10. AMBIEN [Concomitant]
     Active Substance: ZOLPIDEM TARTRATE
  11. CEVIMELINE HCL [Concomitant]
     Active Substance: CEVIMELINE HYDROCHLORIDE
  12. CLINDAMYCIN PHOSPHATE. [Concomitant]
     Active Substance: CLINDAMYCIN PHOSPHATE
  13. FLONASE                            /00908302/ [Concomitant]
     Active Substance: MOMETASONE FUROATE
  14. XYREM [Suspect]
     Active Substance: SODIUM OXYBATE
     Dosage: DOSE ADJUSTMENTS
     Route: 048
     Dates: start: 201008, end: 201603
  15. ELAVIL                             /00003301/ [Concomitant]
  16. GABAPENTIN. [Concomitant]
     Active Substance: GABAPENTIN
  17. HYDROCORTISONE                     /00028604/ [Concomitant]
  18. OCEAN SALINE NASAL SPRAY [Concomitant]
     Active Substance: SODIUM CHLORIDE
  19. PENLAC [Concomitant]
     Active Substance: CICLOPIROX
  20. VITAMIN C                          /00266801/ [Concomitant]
  21. VITAMIN D3 [Concomitant]
     Active Substance: CHOLECALCIFEROL
  22. CLONAZEPAM. [Concomitant]
     Active Substance: CLONAZEPAM
  23. FLUOCINONIDE F [Concomitant]
  24. NORCO [Concomitant]
     Active Substance: ACETAMINOPHEN\HYDROCODONE BITARTRATE
  25. TYLENOL WITH CODEINE [Concomitant]
     Active Substance: ACETAMINOPHEN\CODEINE PHOSPHATE
  26. RESTASIS [Concomitant]
     Active Substance: CYCLOSPORINE
  27. FLUOCINONIDE. [Concomitant]
     Active Substance: FLUOCINONIDE
  28. SEROQUEL [Concomitant]
     Active Substance: QUETIAPINE FUMARATE
  29. SUMATRIPTAN                        /01044802/ [Concomitant]
  30. TOPIRAMATE. [Concomitant]
     Active Substance: TOPIRAMATE
  31. XYREM [Suspect]
     Active Substance: SODIUM OXYBATE
     Dosage: 4.5 G, BID
     Route: 048
     Dates: start: 201603
  32. ALPHA LIPOIC ACID [Concomitant]
     Active Substance: .ALPHA.-LIPOIC ACID
  33. BUSPIRONE HCL [Concomitant]
     Active Substance: BUSPIRONE HYDROCHLORIDE
  34. CLINDAMYCIN. [Concomitant]
     Active Substance: CLINDAMYCIN
  35. CLOBETASOL                         /00337102/ [Concomitant]
     Active Substance: CLOBETASOL
  36. DERMOPLAST                         /00172701/ [Concomitant]
     Active Substance: BENZETHONIUM\BENZOCAINE\MENTHOL
  37. FISH OIL                           /01682401/ [Concomitant]
  38. TERAZOSIN                          /00685102/ [Concomitant]

REACTIONS (5)
  - Onychomycosis [Unknown]
  - Eczema [Recovered/Resolved]
  - Haemorrhoids [Recovering/Resolving]
  - Otitis externa [Not Recovered/Not Resolved]
  - Migraine [Recovering/Resolving]

NARRATIVE: CASE EVENT DATE: 2013
